FAERS Safety Report 7419320-1 (Version None)
Quarter: 2011Q2

REPORT INFORMATION
  Report Type: 
  Country: None (occurrence: None)
  Receive Date: 20110415
  Receipt Date: 20110406
  Transmission Date: 20111010
  Serious: Yes (Life-Threatening, Hospitalization, Disabling, Other)
  Sender: FDA-Public Use
  Company Number: CA-ABBOTT-10P-028-0692322-00

PATIENT
  Sex: Female

DRUGS (11)
  1. CALCIUM WITH VITAMIN D [Concomitant]
     Indication: OSTEOPOROSIS
     Route: 048
     Dates: start: 20090714, end: 20100901
  2. PROTYLOL [Concomitant]
     Indication: ABDOMINAL PAIN
     Route: 048
     Dates: start: 20091130
  3. HUMIRA [Suspect]
     Route: 058
     Dates: end: 20101206
  4. CORTISONE [Concomitant]
     Indication: CROHN'S DISEASE
     Dosage: 50 MG TAPERING
     Route: 048
     Dates: start: 20090714, end: 20090901
  5. HUMIRA [Suspect]
     Indication: CROHN'S DISEASE
     Route: 058
     Dates: start: 20090817, end: 20090817
  6. HUMIRA [Suspect]
     Dosage: WEEK 2
     Route: 058
  7. LOPERAMIDE [Concomitant]
     Indication: CROHN'S DISEASE
  8. CALCIUM WITH VITAMIN D [Concomitant]
     Indication: PROPHYLAXIS
  9. PREDNISONE [Concomitant]
     Indication: CROHN'S DISEASE
  10. LOPERAMIDE [Concomitant]
     Indication: POST PROCEDURAL DIARRHOEA
     Route: 048
     Dates: start: 20000901
  11. TYLENOL EXTRA-STRENGTH [Concomitant]
     Indication: HEADACHE
     Route: 048
     Dates: start: 20090913

REACTIONS (7)
  - SMALL INTESTINAL STENOSIS [None]
  - ABDOMINAL ADHESIONS [None]
  - GASTROINTESTINAL NECROSIS [None]
  - ABDOMINAL ABSCESS [None]
  - PERITONITIS BACTERIAL [None]
  - VOLVULUS OF SMALL BOWEL [None]
  - ENTEROCUTANEOUS FISTULA [None]
